FAERS Safety Report 9213555 (Version 2)
Quarter: 2013Q2

REPORT INFORMATION
  Report Type: Spontaneous
  Country: US (occurrence: US)
  Receive Date: 20130405
  Receipt Date: 20130603
  Transmission Date: 20140414
  Serious: No
  Sender: FDA-Public Use
  Company Number: US-009507513-1304USA002341

PATIENT
  Sex: Female
  Weight: 55.33 kg

DRUGS (1)
  1. NUVARING [Suspect]
     Indication: CONTRACEPTION
     Dosage: UNK
     Route: 067

REACTIONS (2)
  - Medical device discomfort [Recovered/Resolved]
  - Device breakage [Unknown]
